FAERS Safety Report 25235289 (Version 2)
Quarter: 2025Q2

REPORT INFORMATION
  Report Type: Spontaneous
  Country: CN (occurrence: CN)
  Receive Date: 20250424
  Receipt Date: 20250505
  Transmission Date: 20250716
  Serious: Yes (Other)
  Sender: BLUEPRINT MEDICINES
  Company Number: CN-CSTONE PHARMACEUTICALS (SUZHOU) CO., LTD.-2025CN00222

PATIENT
  Age: 15 Year
  Sex: Female

DRUGS (8)
  1. AYVAKIT [Suspect]
     Active Substance: AVAPRITINIB
     Indication: Leukaemia
     Dosage: 100 MILLIGRAM, QD
     Route: 048
     Dates: start: 202303, end: 202304
  2. AYVAKIT [Suspect]
     Active Substance: AVAPRITINIB
     Dosage: 50 MILLIGRAM PER DAY
     Route: 048
  3. AYVAKIT [Suspect]
     Active Substance: AVAPRITINIB
     Dosage: 100 MILLIGRAM, QOD
     Route: 048
  4. AYVAKIT [Suspect]
     Active Substance: AVAPRITINIB
     Dosage: 1 TABLET EVERY 2 DAYS
     Route: 048
  5. AYVAKIT [Suspect]
     Active Substance: AVAPRITINIB
     Dosage: 1 TABLET EVERY 2 DAYS
     Route: 048
  6. AYVAKIT [Suspect]
     Active Substance: AVAPRITINIB
     Route: 048
  7. RUXOLITINIB [Suspect]
     Active Substance: RUXOLITINIB
     Indication: Product used for unknown indication
     Route: 065
  8. POSACONAZOLE [Concomitant]
     Active Substance: POSACONAZOLE
     Indication: Infection prophylaxis
     Route: 048

REACTIONS (11)
  - Lung transplant rejection [Unknown]
  - Pulmonary fibrosis [Unknown]
  - Bronchostenosis [Unknown]
  - Blood test abnormal [Recovering/Resolving]
  - Neutrophil count decreased [Recovering/Resolving]
  - White blood cell count decreased [Recovering/Resolving]
  - Hyperplasia [Unknown]
  - Off label use [Unknown]
  - Off label use [Unknown]
  - Off label use [Unknown]
  - Product intolerance [Unknown]

NARRATIVE: CASE EVENT DATE: 20230301
